FAERS Safety Report 7069731-1 (Version None)
Quarter: 2010Q4

REPORT INFORMATION
  Report Type: 
  Country: None (occurrence: None)
  Receive Date: 20101028
  Receipt Date: 20100524
  Transmission Date: 20110411
  Serious: No
  Sender: FDA-Public Use
  Company Number: US-WYE-H15300910

PATIENT
  Sex: Female

DRUGS (4)
  1. PROTONIX [Suspect]
     Dosage: UNKNOWN
  2. WARFARIN SODIUM [Concomitant]
  3. RANITIDINE HYDROCHLORIDE [Concomitant]
  4. PLAVIX [Suspect]
     Route: 048
     Dates: start: 20080101

REACTIONS (1)
  - CONTUSION [None]
